FAERS Safety Report 12853068 (Version 1)
Quarter: 2016Q4

REPORT INFORMATION
  Report Type: Spontaneous
  Country: US (occurrence: US)
  Receive Date: 20161017
  Receipt Date: 20161017
  Transmission Date: 20170207
  Serious: No
  Sender: FDA-Public Use
  Company Number: US-JAZZ-2016-US-014148

PATIENT
  Sex: Female

DRUGS (11)
  1. XYREM [Suspect]
     Active Substance: SODIUM OXYBATE
     Dosage: DOSE ADJUSTMENTS
     Route: 048
     Dates: start: 200707, end: 200712
  2. LAMOTRIGINE. [Concomitant]
     Active Substance: LAMOTRIGINE
  3. ADDERALL [Concomitant]
     Active Substance: AMPHETAMINE ASPARTATE\AMPHETAMINE SULFATE\DEXTROAMPHETAMINE SACCHARATE\DEXTROAMPHETAMINE SULFATE
  4. NEURONTIN [Concomitant]
     Active Substance: GABAPENTIN
  5. XYREM [Suspect]
     Active Substance: SODIUM OXYBATE
     Dosage: 5 G, BID
     Route: 048
     Dates: start: 200712
  6. WARFARIN SODIUM. [Concomitant]
     Active Substance: WARFARIN SODIUM
  7. PRISTIQ EXTENDED-RELEASE [Concomitant]
     Active Substance: DESVENLAFAXINE SUCCINATE
  8. CYMBALTA [Concomitant]
     Active Substance: DULOXETINE HYDROCHLORIDE
  9. XYREM [Suspect]
     Active Substance: SODIUM OXYBATE
     Indication: NARCOLEPSY
     Dosage: 2.25 G, BID
     Route: 048
     Dates: start: 200706, end: 200707
  10. FRAGMIN [Concomitant]
     Active Substance: DALTEPARIN SODIUM
  11. LYRICA [Concomitant]
     Active Substance: PREGABALIN

REACTIONS (1)
  - Intentional product use issue [Unknown]
